FAERS Safety Report 24156607 (Version 1)
Quarter: 2024Q3

REPORT INFORMATION
  Report Type: Spontaneous
  Country: US (occurrence: US)
  Receive Date: 20240731
  Receipt Date: 20240731
  Transmission Date: 20241016
  Serious: No
  Sender: INCYTE
  Company Number: US-INCYTE CORPORATION-2024IN007634

PATIENT

DRUGS (1)
  1. JAKAFI [Suspect]
     Active Substance: RUXOLITINIB
     Indication: Prolymphocytic leukaemia
     Dosage: 10 MILLIGRAM, BID
     Route: 065

REACTIONS (2)
  - Product prescribing error [Unknown]
  - Insurance issue [Unknown]
